FAERS Safety Report 6401897-6 (Version None)
Quarter: 2009Q4

REPORT INFORMATION
  Report Type: 
  Country: None (occurrence: None)
  Receive Date: 20091013
  Receipt Date: 20090928
  Transmission Date: 20100525
  Serious: Yes (Other)
  Sender: FDA-Public Use
  Company Number: 2009-03916

PATIENT
  Age: 68 Year
  Sex: Female
  Weight: 79.3 kg

DRUGS (3)
  1. VELCADE [Suspect]
     Indication: DRUG USE FOR UNKNOWN INDICATION
     Dosage: 2.4 MG, INTRAVENOUS
     Route: 042
     Dates: start: 20090824, end: 20090924
  2. VORINOSTAT(SUBEROYLANILIDE HYDROXAMIC ACID0 ORAL DRUG UNSPECIFIED FORM [Suspect]
     Indication: DRUG USE FOR UNKNOWN INDICATION
     Dosage: 400 MG, ORAL
     Route: 048
     Dates: start: 20090824, end: 20090924
  3. AVELOX [Concomitant]

REACTIONS (10)
  - DEHYDRATION [None]
  - DIARRHOEA [None]
  - DIZZINESS [None]
  - ECCHYMOSIS [None]
  - ELECTROCARDIOGRAM QT PROLONGED [None]
  - FALL [None]
  - HEAD INJURY [None]
  - HYPOPHAGIA [None]
  - NAUSEA [None]
  - SYNCOPE [None]
